FAERS Safety Report 22121284 (Version 1)
Quarter: 2023Q1

REPORT INFORMATION
  Report Type: Spontaneous
  Country: TR (occurrence: TR)
  Receive Date: 20230321
  Receipt Date: 20230321
  Transmission Date: 20230418
  Serious: Yes (Other)
  Sender: FDA-Public Use
  Company Number: TR-002147023-NVSC2023TR061867

PATIENT
  Age: 76 Year
  Sex: Male

DRUGS (2)
  1. TAFINLAR [Suspect]
     Active Substance: DABRAFENIB MESYLATE
     Indication: Malignant neoplasm progression
     Dosage: 300 MG (2X2) (STARTED FROM 20 DAYS AGO)
     Route: 065
  2. MEKINIST [Suspect]
     Active Substance: TRAMETINIB DIMETHYL SULFOXIDE
     Indication: Malignant neoplasm progression
     Dosage: 2 MG (1X1) (STARTED FROM 20 DAYS AGO)
     Route: 065

REACTIONS (12)
  - Malaria [Unknown]
  - Pyrexia [Unknown]
  - Chills [Unknown]
  - Mouth ulceration [Unknown]
  - Weight decreased [Unknown]
  - Hyperhidrosis [Unknown]
  - Burning sensation [Unknown]
  - Cough [Unknown]
  - Sputum discoloured [Unknown]
  - Feeling abnormal [Unknown]
  - Tremor [Unknown]
  - Nasopharyngitis [Unknown]
